FAERS Safety Report 18058847 (Version 1)
Quarter: 2020Q3

REPORT INFORMATION
  Report Type: Spontaneous
  Country: US (occurrence: US)
  Receive Date: 20200722
  Receipt Date: 20200722
  Transmission Date: 20201103
  Serious: Yes (Other)
  Sender: FDA-Public Use
  Company Number: None

PATIENT
  Age: 64 Year
  Sex: Male
  Weight: 100.8 kg

DRUGS (6)
  1. VENLAFAXINE [Concomitant]
     Active Substance: VENLAFAXINE HYDROCHLORIDE
     Dates: start: 20120515
  2. QUETIAPINE. [Concomitant]
     Active Substance: QUETIAPINE
     Dates: start: 20191020
  3. OLANZAPINE PRN [Concomitant]
     Dates: start: 20191205
  4. NUPLAZID [Suspect]
     Active Substance: PIMAVANSERIN TARTRATE
     Indication: PARKINSON^S DISEASE PSYCHOSIS
     Route: 048
     Dates: start: 20200710, end: 20200720
  5. ENTACAPONE. [Concomitant]
     Active Substance: ENTACAPONE
  6. CARBIDOPA LEVODOPA [Concomitant]
     Active Substance: CARBIDOPA\LEVODOPA

REACTIONS (4)
  - Delusion [None]
  - Hallucination, visual [None]
  - Psychotic disorder [None]
  - Therapy cessation [None]

NARRATIVE: CASE EVENT DATE: 20200710
